FAERS Safety Report 7623376-0 (Version None)
Quarter: 2011Q3

REPORT INFORMATION
  Report Type: 
  Country: None (occurrence: None)
  Receive Date: 20110712
  Receipt Date: 20110627
  Transmission Date: 20111222
  Serious: Yes (Other)
  Sender: FDA-Public Use
  Company Number: 2011P1007420

PATIENT
  Age: 23 Year
  Sex: Male

DRUGS (5)
  1. TACROLIMUS [Concomitant]
  2. SULPHADIAZINE [Concomitant]
  3. CLARITHROMYCIN [Concomitant]
  4. PREDNISOLONE [Concomitant]
  5. PYRIMETHAMINE TAB [Suspect]
     Indication: CEREBRAL TOXOPLASMOSIS
     Dosage: 75 MG, QD; 25 MG, QD;

REACTIONS (3)
  - ANAEMIA [None]
  - PANCYTOPENIA [None]
  - MICROANGIOPATHY [None]
